FAERS Safety Report 7268678-5 (Version None)
Quarter: 2011Q1

REPORT INFORMATION
  Report Type: 
  Country: None (occurrence: None)
  Receive Date: 20110201
  Receipt Date: 20110124
  Transmission Date: 20110831
  Serious: Yes (Other)
  Sender: FDA-Public Use
  Company Number: NZ-PFIZER INC-2010022987

PATIENT
  Sex: Female

DRUGS (2)
  1. PREMARIN [Suspect]
     Dosage: 0.625 MG, 1X/DAY, FOR 10 DAYS FOR MENSTRUAL CYCLE
  2. PROVERA [Suspect]
     Dosage: 5 MG, FOR 10 DAYS FOR MENSTRUAL CYCLE

REACTIONS (5)
  - CONDITION AGGRAVATED [None]
  - DRUG HYPERSENSITIVITY [None]
  - PREMENSTRUAL SYNDROME [None]
  - AMENORRHOEA [None]
  - LIBIDO DECREASED [None]
